FAERS Safety Report 9147412 (Version 2)
Quarter: 2013Q2

REPORT INFORMATION
  Report Type: Spontaneous
  Country: FR (occurrence: FR)
  Receive Date: 20130307
  Receipt Date: 20130514
  Transmission Date: 20140414
  Serious: Yes (Hospitalization)
  Sender: FDA-Public Use
  Company Number: FR-GLAXOSMITHKLINE-B0871673B

PATIENT
  Age: 0 Year
  Sex: Female

DRUGS (12)
  1. DEROXAT [Suspect]
     Indication: DEPRESSION
     Dosage: 20MG PER DAY
     Route: 064
     Dates: start: 201208, end: 20120905
  2. DEROXAT [Suspect]
     Indication: DEPRESSION
     Dosage: 20MG PER DAY
     Route: 063
     Dates: start: 20120905
  3. SERESTA [Suspect]
     Indication: ANXIETY
     Dosage: 200MG PER DAY
     Route: 064
     Dates: start: 201208, end: 20120905
  4. SERESTA [Suspect]
     Indication: ANXIETY
     Dosage: 200MG PER DAY
     Route: 063
     Dates: start: 20120905
  5. ATARAX [Suspect]
     Indication: ANXIETY
     Dosage: 150MG PER DAY
     Route: 064
     Dates: start: 201208, end: 20120905
  6. ATARAX [Suspect]
     Indication: ANXIETY
     Dosage: 150MG PER DAY
     Route: 063
     Dates: start: 20120905
  7. INSULIN [Concomitant]
     Indication: DIABETES MELLITUS
     Route: 064
     Dates: end: 20120905
  8. INSULIN [Concomitant]
     Route: 063
     Dates: start: 20120905
  9. PROZAC [Concomitant]
     Dosage: 20MG PER DAY
     Route: 064
     Dates: end: 201207
  10. VALIUM [Concomitant]
     Dosage: 30MG PER DAY
     Route: 064
     Dates: end: 201207
  11. LEXOMIL [Concomitant]
     Dosage: .75UNIT PER DAY
     Route: 064
  12. LEXOMIL [Concomitant]
     Dosage: .75MG PER DAY
     Route: 063

REACTIONS (7)
  - Hypoventilation [Recovered/Resolved]
  - Hypotonia neonatal [Recovered/Resolved]
  - Tremor [Recovered/Resolved]
  - Oxygen saturation decreased [Recovered/Resolved]
  - Drug withdrawal syndrome neonatal [Recovered/Resolved]
  - Foetal exposure during pregnancy [Unknown]
  - Exposure during breast feeding [Unknown]
